FAERS Safety Report 23200944 (Version 1)
Quarter: 2023Q4

REPORT INFORMATION
  Report Type: Report from Study
  Country: ZA (occurrence: ZA)
  Receive Date: 20231118
  Receipt Date: 20231118
  Transmission Date: 20240110
  Serious: Yes (Death, Other)
  Sender: FDA-Public Use
  Company Number: ZA-002147023-NVSC2022ZA188428

PATIENT
  Age: 81 Year
  Sex: Male

DRUGS (2)
  1. BROLUCIZUMAB [Suspect]
     Active Substance: BROLUCIZUMAB
     Indication: Neovascular age-related macular degeneration
     Dosage: 27.6 MG IN 0.23 ML, QMO
     Route: 047
     Dates: start: 20210907
  2. BROLUCIZUMAB [Suspect]
     Active Substance: BROLUCIZUMAB
     Dosage: 6 MG, QMO, (27.6 MG IN 0.23 ML)
     Route: 047
     Dates: start: 20210910

REACTIONS (2)
  - Death [Fatal]
  - Infection [Unknown]
